FAERS Safety Report 9477869 (Version 2)
Quarter: 2013Q3

REPORT INFORMATION
  Report Type: Spontaneous
  Country: US (occurrence: US)
  Receive Date: 20130827
  Receipt Date: 20130909
  Transmission Date: 20140515
  Serious: Yes (Death, Other)
  Sender: FDA-Public Use
  Company Number: US-AMGEN-USASP2013059120

PATIENT
  Age: 90 Year
  Sex: Female

DRUGS (1)
  1. PROLIA [Suspect]
     Indication: PRODUCT USED FOR UNKNOWN INDICATION
     Dosage: 60 UNK, Q6MO
     Route: 058
     Dates: start: 20121019

REACTIONS (3)
  - Respiratory arrest [Fatal]
  - Dementia Alzheimer^s type [Fatal]
  - General physical health deterioration [Unknown]
